FAERS Safety Report 4616043-9 (Version None)
Quarter: 2005Q1

REPORT INFORMATION
  Report Type: 
  Country: None (occurrence: None)
  Receive Date: 20050321
  Receipt Date: 20050307
  Transmission Date: 20050727
  Serious: Yes (Hospitalization)
  Sender: FDA-Public Use
  Company Number: 062-20785-04120051

PATIENT
  Age: 63 Year
  Sex: Male

DRUGS (5)
  1. THALIDOMIDE - PHARMION (THALIDOMIE) (100 MILLIGRAM, CAPSULES) [Suspect]
     Indication: MULTIPLE MYELOMA
     Dosage: 100 MG, DAILY, ORAL
     Route: 048
     Dates: start: 20041018, end: 20041117
  2. CYCLOPHOSPHAMIDE [Suspect]
     Indication: MULTIPLE MYELOMA
     Dosage: 400 MG
     Dates: start: 20041018, end: 20041021
  3. IDARUBICIN HCL [Suspect]
     Indication: MULTIPLE MYELOMA
     Dosage: 15 MG
     Dates: start: 20041018, end: 20041021
  4. DEXAMETHASONE [Suspect]
     Indication: MULTIPLE MYELOMA
     Dosage: 40 MG
     Dates: start: 20041018, end: 20041021
  5. PEGFILGRASTIM (PEGFILGRASTIM) [Concomitant]

REACTIONS (12)
  - APLASIA [None]
  - C-REACTIVE PROTEIN INCREASED [None]
  - DRUG RESISTANCE [None]
  - EOSINOPHILIC PNEUMONIA [None]
  - FEBRILE NEUTROPENIA [None]
  - INTERSTITIAL LUNG DISEASE [None]
  - MOUTH PLAQUE [None]
  - RHINITIS [None]
  - SPUTUM DISCOLOURED [None]
  - STEM CELL TRANSPLANT [None]
  - THROMBOCYTOPENIA [None]
  - WHITE BLOOD CELL COUNT DECREASED [None]
